FAERS Safety Report 5848904-7 (Version None)
Quarter: 2008Q3

REPORT INFORMATION
  Report Type: 
  Country: None (occurrence: None)
  Receive Date: 20080818
  Receipt Date: 20080806
  Transmission Date: 20090109
  Serious: Yes (Hospitalization, Other)
  Sender: FDA-Public Use
  Company Number: US-PFIZER INC-2008066498

PATIENT
  Sex: Female
  Weight: 77.1 kg

DRUGS (19)
  1. GLIPIZIDE [Suspect]
     Indication: DIABETES MELLITUS
     Route: 048
  2. NEURONTIN [Suspect]
     Indication: NEURALGIA
     Route: 048
  3. ZOLOFT [Suspect]
     Indication: DEPRESSION
     Route: 048
  4. ANTIVERT [Suspect]
     Indication: DIZZINESS
     Route: 048
  5. ACIPHEX [Concomitant]
  6. CLONIDINE [Concomitant]
  7. COZAAR [Concomitant]
  8. ALLERGY MEDICATION [Concomitant]
  9. CRESTOR [Concomitant]
  10. COREG [Concomitant]
  11. ALDACTONE [Concomitant]
  12. ARAVA [Concomitant]
  13. WARFARIN SODIUM [Concomitant]
  14. MONTELUKAST SODIUM [Concomitant]
  15. LORAZEPAM [Concomitant]
  16. MUCINEX [Concomitant]
  17. MULTI-VITAMINS [Concomitant]
  18. ACETYLSALICYLIC ACID SRT [Concomitant]
  19. ALL OTHER THERAPEUTIC PRODUCTS [Concomitant]

REACTIONS (13)
  - ANAEMIA [None]
  - CARDIAC MURMUR [None]
  - COGNITIVE DISORDER [None]
  - CONFUSIONAL STATE [None]
  - DIZZINESS [None]
  - DRUG INEFFECTIVE [None]
  - DRY EYE [None]
  - EYELID PTOSIS [None]
  - MUSCLE SPASMS [None]
  - MYOCARDIAL INFARCTION [None]
  - RHEUMATOID ARTHRITIS [None]
  - VISUAL BRIGHTNESS [None]
  - VISUAL IMPAIRMENT [None]
